FAERS Safety Report 6713501-8 (Version None)
Quarter: 2010Q2

REPORT INFORMATION
  Report Type: 
  Country: None (occurrence: None)
  Receive Date: 20100503
  Receipt Date: 20100408
  Transmission Date: 20101027
  Serious: Yes (Other)
  Sender: FDA-Public Use
  Company Number: 2010AL002083

PATIENT
  Sex: Male

DRUGS (4)
  1. METFORMIN HCL [Suspect]
     Indication: TYPE 2 DIABETES MELLITUS
  2. LOSARTAN POTASSIUM [Concomitant]
  3. BENDROFLUMETHIAZIDE [Concomitant]
  4. INDAPAMIDE [Concomitant]

REACTIONS (2)
  - DIVERTICULUM [None]
  - HERNIA [None]
